FAERS Safety Report 5157714-8 (Version None)
Quarter: 2006Q4

REPORT INFORMATION
  Report Type: 
  Country: None (occurrence: None)
  Receive Date: 20061127
  Receipt Date: 20031224
  Transmission Date: 20070319
  Serious: Yes (Hospitalization)
  Sender: FDA-Public Use
  Company Number: US-SANOFI-SYNTHELABO-F01200301539

PATIENT
  Sex: Male

DRUGS (13)
  1. DIFLUCAN [Concomitant]
     Dosage: UNK
     Route: 065
     Dates: start: 20031108
  2. PHENERGAN [Concomitant]
     Dosage: UNK
     Route: 065
     Dates: start: 20031029
  3. VICODIN [Concomitant]
     Dosage: UNK
     Route: 065
     Dates: start: 20031023
  4. NEXIUM [Concomitant]
     Dosage: UNK
     Route: 065
     Dates: start: 20031022
  5. CELEBREX [Concomitant]
     Dosage: UNK
     Route: 065
     Dates: start: 20031029
  6. COMPAZINE [Concomitant]
     Dosage: UNK
     Route: 065
     Dates: start: 20031008
  7. HYDROCHLOROTHIAZIDE [Concomitant]
     Dosage: UNK
     Route: 065
     Dates: start: 20031015
  8. LISINOPRIL [Concomitant]
     Dosage: UNK
     Route: 065
     Dates: start: 20031015
  9. ATENOLOL [Concomitant]
     Dosage: UNK
     Route: 065
     Dates: start: 20011015
  10. PERCOCET [Concomitant]
     Dosage: UNK
     Route: 065
     Dates: start: 20031008, end: 20031022
  11. CAPECITABINE [Suspect]
     Dosage: 2000 MG/M2 TWICE A DAY FROM D1 TO D14, Q3W
     Route: 048
  12. OXYCODONE HCL [Concomitant]
     Dosage: UNK
     Route: 065
     Dates: start: 20031023
  13. OXALIPLATIN [Suspect]
     Indication: COLORECTAL CANCER METASTATIC
     Route: 042
     Dates: start: 20031209, end: 20031209

REACTIONS (1)
  - DYSPNOEA [None]
